FAERS Safety Report 17681531 (Version 1)
Quarter: 2020Q2

REPORT INFORMATION
  Report Type: Spontaneous
  Country: FR (occurrence: FR)
  Receive Date: 20200417
  Receipt Date: 20200417
  Transmission Date: 20200714
  Serious: Yes (Other)
  Sender: FDA-Public Use
  Company Number: FR-GUERBET-FR-20200192

PATIENT
  Age: 58 Year
  Sex: Male

DRUGS (2)
  1. LIPIODOL [Suspect]
     Active Substance: ETHIODIZED OIL
     Indication: GASTRIC VARICEAL LIGATION
     Dosage: MIXED WITH NBCA IN A RATIO OF 1:1 (2 ML IN TOTAL)
     Route: 050
     Dates: start: 201903, end: 201903
  2. NBCA [Suspect]
     Active Substance: ENBUCRILATE
     Indication: GASTRIC VARICEAL LIGATION
     Dosage: MIXED WITH LIPIODOL IN A RATIO OF 1:1 (2 ML IN TOTAL)
     Dates: start: 201903, end: 201903

REACTIONS (2)
  - Pericarditis [Recovered/Resolved]
  - Embolism venous [Recovered/Resolved]

NARRATIVE: CASE EVENT DATE: 2019
